FAERS Safety Report 4616520-0 (Version None)
Quarter: 2005Q1

REPORT INFORMATION
  Report Type: 
  Country: None (occurrence: None)
  Receive Date: 20050318
  Receipt Date: 20050302
  Transmission Date: 20050727
  Serious: Yes (Death)
  Sender: FDA-Public Use
  Company Number: L04-USA-07403-06

PATIENT
  Age: 37 Year
  Sex: Female

DRUGS (16)
  1. CELEXA [Suspect]
  2. ACETAMINOPHEN/DIPHENHYDRAMINE [Suspect]
  3. CARISOPRODOL [Suspect]
  4. MEPROBAMATE [Suspect]
  5. PANTOPRAZOLE SODIUM [Suspect]
  6. LEVOFLOXACIN [Suspect]
  7. NABUMETONE [Suspect]
  8. ATORVASTATIN CALCIUM [Suspect]
  9. MA HUANG/GUARANA/OTHER BOTANICALS [Suspect]
  10. ACETAMINOPHEN AND HYDROCODONE BITARTRATE [Suspect]
  11. FEXOFENADINE HCL [Suspect]
  12. MEXILETINE HCL [Suspect]
  13. PENICILLIN [Suspect]
  14. AMPHETAMINE SULFATE-DEXTROAMPHETAMINE SULFATE TAB [Suspect]
  15. MAGNESIUM SALICYLATE [Suspect]
  16. GEMFIBROZIL [Suspect]

REACTIONS (13)
  - ABDOMINAL PAIN [None]
  - ALANINE AMINOTRANSFERASE INCREASED [None]
  - ANION GAP INCREASED [None]
  - ASPARTATE AMINOTRANSFERASE INCREASED [None]
  - BLOOD GLUCOSE DECREASED [None]
  - COMA [None]
  - COMPLETED SUICIDE [None]
  - CREATINE PHOSPHOKINASE DECREASED [None]
  - HYPOTENSION [None]
  - INTENTIONAL MISUSE [None]
  - NAUSEA [None]
  - SINUS TACHYCARDIA [None]
  - VOMITING [None]
